FAERS Safety Report 13774573 (Version 2)
Quarter: 2017Q4

REPORT INFORMATION
  Report Type: Report from Study
  Country: DE (occurrence: DE)
  Receive Date: 20170721
  Receipt Date: 20171030
  Transmission Date: 20180320
  Serious: Yes (Death, Life-Threatening, Hospitalization)
  Sender: FDA-Public Use
  Company Number: PHHO2015DE011688

PATIENT
  Age: 51 Year
  Sex: Male

DRUGS (9)
  1. SUPRARENIN [Suspect]
     Active Substance: EPINEPHRINE
     Dosage: 0.1 MG, QH
     Route: 042
     Dates: start: 20150713
  2. NO TREATMENT RECEIVED [Suspect]
     Active Substance: UNSPECIFIED INGREDIENT
     Indication: LIVER TRANSPLANT
     Dosage: NO TREATMENT
     Route: 065
  3. SUPRARENIN [Suspect]
     Active Substance: EPINEPHRINE
     Indication: PRODUCT USED FOR UNKNOWN INDICATION
     Dosage: 0.2 MG, QH
     Route: 042
     Dates: start: 20150711, end: 20150711
  4. HEPARIN [Suspect]
     Active Substance: HEPARIN SODIUM
     Dosage: 700 IE IN 1 HOUR
     Route: 042
     Dates: start: 20150721, end: 20150722
  5. NORADRENALIN [Suspect]
     Active Substance: NOREPINEPHRINE\NOREPINEPHRINE BITARTRATE
     Dosage: 1.2 MG, QH
     Route: 042
     Dates: start: 20150713
  6. HEPARIN [Suspect]
     Active Substance: HEPARIN SODIUM
     Indication: ANTICOAGULANT THERAPY
     Dosage: 600 IE IN 1 HOUR
     Route: 042
     Dates: start: 20150717, end: 20150720
  7. HEPARIN [Suspect]
     Active Substance: HEPARIN SODIUM
     Dosage: 200 IE IN 1 HOUR
     Route: 042
     Dates: start: 20150722, end: 20150722
  8. HEPARIN [Suspect]
     Active Substance: HEPARIN SODIUM
     Dosage: 300 IE IN 1 HOUR
     Route: 042
     Dates: start: 20150725, end: 20150726
  9. NORADRENALIN [Suspect]
     Active Substance: NOREPINEPHRINE\NOREPINEPHRINE BITARTRATE
     Indication: PRODUCT USED FOR UNKNOWN INDICATION
     Dosage: 1.6 MG, QH
     Route: 042
     Dates: start: 20150711, end: 20150711

REACTIONS (3)
  - Respiratory failure [Fatal]
  - Retroperitoneal haemorrhage [Recovered/Resolved]
  - Stress cardiomyopathy [Recovered/Resolved with Sequelae]

NARRATIVE: CASE EVENT DATE: 20150711
